FAERS Safety Report 24000982 (Version 2)
Quarter: 2024Q2

REPORT INFORMATION
  Report Type: Report from Study
  Country: CA (occurrence: CA)
  Receive Date: 20240621
  Receipt Date: 20240628
  Transmission Date: 20240716
  Serious: Yes (Other)
  Sender: FDA-Public Use
  Company Number: CA-HLS-202401483

PATIENT
  Age: 26 Year
  Sex: Male

DRUGS (17)
  1. CLOZARIL [Suspect]
     Active Substance: CLOZAPINE
     Indication: Schizoaffective disorder bipolar type
     Dosage: BID
     Route: 048
     Dates: start: 20240405
  2. CLOZARIL [Suspect]
     Active Substance: CLOZAPINE
     Indication: Schizoaffective disorder bipolar type
     Dosage: RESTARTED AT A LOWER DOSE REACHING 100 MG BID
     Route: 048
  3. INVEGA SUSTENNA [Concomitant]
     Active Substance: PALIPERIDONE PALMITATE
     Dosage: Q21 DAYS
     Route: 030
  4. ABILIFY [Concomitant]
     Active Substance: ARIPIPRAZOLE
     Indication: Antipsychotic therapy
     Dosage: QAM
     Route: 048
  5. ABILIFY [Concomitant]
     Active Substance: ARIPIPRAZOLE
     Indication: Mood swings
     Dosage: QAM
     Route: 048
  6. ABILIFY [Concomitant]
     Active Substance: ARIPIPRAZOLE
     Indication: Antipsychotic therapy
     Dosage: QAM
     Route: 048
  7. ABILIFY [Concomitant]
     Active Substance: ARIPIPRAZOLE
     Indication: Mood swings
     Dosage: QAM
     Route: 048
  8. LOXAPINE [Concomitant]
     Active Substance: LOXAPINE
     Indication: Antipsychotic therapy
     Dosage: QNOON
     Route: 048
  9. LOXAPINE [Concomitant]
     Active Substance: LOXAPINE
     Indication: Antipsychotic therapy
     Dosage: QHS
     Route: 048
  10. LOXAPINE [Concomitant]
     Active Substance: LOXAPINE
     Indication: Antipsychotic therapy
     Dosage: QHS
     Route: 048
  11. BISOPROLOL [Concomitant]
     Active Substance: BISOPROLOL\BISOPROLOL FUMARATE
     Route: 048
  12. LORAZEPAM [Concomitant]
     Active Substance: LORAZEPAM
     Indication: Sleep disorder
     Dosage: QHS
     Route: 065
  13. LORAZEPAM [Concomitant]
     Active Substance: LORAZEPAM
     Indication: Antipsychotic therapy
     Dosage: QHS
     Route: 065
  14. RISPERIDONE [Concomitant]
     Active Substance: RISPERIDONE
     Indication: Product used for unknown indication
     Dosage: UPTO 5 MG, QHS
     Route: 048
  15. RISPERIDONE [Concomitant]
     Active Substance: RISPERIDONE
     Indication: Product used for unknown indication
     Dosage: QHS
     Route: 048
  16. ZOPICLONE [Concomitant]
     Active Substance: ZOPICLONE
     Indication: Product used for unknown indication
     Dosage: QHS
     Route: 065
  17. ARIPIPRAZOLE [Concomitant]
     Active Substance: ARIPIPRAZOLE
     Indication: Product used for unknown indication
     Route: 065

REACTIONS (9)
  - Rebound psychosis [Recovered/Resolved]
  - Influenza like illness [Unknown]
  - Haematocrit decreased [Unknown]
  - Hypertension [Unknown]
  - Myocarditis [Unknown]
  - Restlessness [Unknown]
  - Orthostatic hypotension [Unknown]
  - Red cell distribution width [Unknown]
  - Tachycardia [Unknown]

NARRATIVE: CASE EVENT DATE: 20240419
